FAERS Safety Report 14103876 (Version 5)
Quarter: 2019Q1

REPORT INFORMATION
  Report Type: Report from Study
  Country: DE (occurrence: DE)
  Receive Date: 20171018
  Receipt Date: 20190117
  Transmission Date: 20190417
  Serious: Yes (Hospitalization)
  Sender: FDA-Public Use
  Company Number: PHHY2017DE151485

PATIENT
  Age: 43 Year
  Sex: Male
  Weight: 100 kg

DRUGS (3)
  1. COSENTYX [Suspect]
     Active Substance: SECUKINUMAB
     Indication: PSORIASIS
     Dosage: 300 MG, QMO (EVERY 04 WEEKS)
     Route: 058
     Dates: start: 20160316, end: 20160412
  2. COSENTYX [Suspect]
     Active Substance: SECUKINUMAB
     Dosage: 300 MG, QMO (EVERY 04 WEEKS)
     Route: 058
     Dates: start: 20170830, end: 20171006
  3. COSENTYX [Suspect]
     Active Substance: SECUKINUMAB
     Dosage: 300 MG, QMO (EVERY 04 WEEKS)
     Route: 058
     Dates: start: 20160413, end: 20170925

REACTIONS (13)
  - Erythema [Unknown]
  - Skin exfoliation [Recovering/Resolving]
  - Alanine aminotransferase increased [Unknown]
  - Wound [Recovered/Resolved]
  - White blood cell count increased [Unknown]
  - Drug eruption [Recovering/Resolving]
  - Trichosporon infection [Unknown]
  - Dyshidrotic eczema [Recovering/Resolving]
  - Pruritus [Recovering/Resolving]
  - Blister [Recovering/Resolving]
  - Corynebacterium infection [Unknown]
  - Papule [Unknown]
  - Flushing [Unknown]

NARRATIVE: CASE EVENT DATE: 20170804
